FAERS Safety Report 5365024-9 (Version None)
Quarter: 2007Q2

REPORT INFORMATION
  Report Type: 
  Country: None (occurrence: None)
  Receive Date: 20070604
  Receipt Date: 20070208
  Transmission Date: 20071010
  Serious: Yes (Hospitalization)
  Sender: FDA-Public Use
  Company Number: 2007-0011032

PATIENT
  Age: 45 Year
  Sex: Male
  Weight: 59.4212 kg

DRUGS (8)
  1. TRUVADA [Suspect]
     Indication: HIV INFECTION
     Dosage: 1 DOSAGE FORMS, 1 IN 1 D, ORAL
     Route: 048
     Dates: start: 20051229, end: 20061228
  2. KALETRA [Suspect]
     Indication: HIV INFECTION
     Dosage: 2 DOSAGE FORMS, 2 IN 1 D, ORAL
     Route: 048
     Dates: start: 20051229, end: 20061228
  3. PRINZIDE [Suspect]
     Indication: HYPERTENSION
     Dosage: 1 DOSAGE FORMS, ORAL
     Route: 048
     Dates: start: 20060424, end: 20061201
  4. VALTREX [Suspect]
     Dates: end: 20061201
  5. PAXIL [Concomitant]
  6. PROSCAR [Concomitant]
  7. VISTARIL(HYDROXYZINE HYDROCHLORIDE) [Concomitant]
  8. PREVACID [Concomitant]

REACTIONS (1)
  - RENAL FAILURE ACUTE [None]
